FAERS Safety Report 16319961 (Version 1)
Quarter: 2019Q2

REPORT INFORMATION
  Report Type: Report from Study
  Country: US (occurrence: US)
  Receive Date: 20190516
  Receipt Date: 20190516
  Transmission Date: 20190711
  Serious: Yes (Other)
  Sender: FDA-Public Use
  Company Number: PHEH2019US020277

PATIENT
  Sex: Male

DRUGS (2)
  1. ENTRESTO [Suspect]
     Active Substance: SACUBITRIL\VALSARTAN
     Dosage: LOWERED DOSAGE BACK DOWN TO LOWEST DOSAGE, UNK
     Route: 048
  2. ENTRESTO [Suspect]
     Active Substance: SACUBITRIL\VALSARTAN
     Indication: PRODUCT USED FOR UNKNOWN INDICATION
     Dosage: DOSAGE INCREASE TO HIGHEST DOSAGE, UNK
     Route: 048

REACTIONS (5)
  - Presyncope [Unknown]
  - Drug intolerance [Unknown]
  - Tremor [Unknown]
  - Shock [Unknown]
  - Blood pressure decreased [Unknown]
